FAERS Safety Report 16106723 (Version 1)
Quarter: 2019Q1

REPORT INFORMATION
  Report Type: Spontaneous
  Country: US (occurrence: US)
  Receive Date: 20190220
  Receipt Date: 20190220
  Transmission Date: 20190418
  Serious: Yes (Other)
  Sender: FDA-Public Use
  Company Number: None

PATIENT
  Age: 33 Year
  Sex: Female
  Weight: 103.7 kg

DRUGS (1)
  1. NORGESTIMATE -ETHYINYL ESTRADOL 0.18/0.215/0.25/35 (28) TAB [Suspect]
     Active Substance: ETHINYL ESTRADIOL\NORGESTIMATE
     Dosage: ?          OTHER STRENGTH:0.18MG/0.215MG/0.2;OTHER DOSE:I TABLET;?
     Route: 048
     Dates: start: 20180423, end: 20180529

REACTIONS (2)
  - Product substitution issue [None]
  - Rash [None]

NARRATIVE: CASE EVENT DATE: 20180423
